APPROVED DRUG PRODUCT: E-Z-PAQUE
Active Ingredient: BARIUM SULFATE
Strength: 96%
Dosage Form/Route: FOR SUSPENSION;ORAL
Application: N208036 | Product #002
Applicant: BRACCO DIAGNOSTICS INC
Approved: Apr 7, 2017 | RLD: Yes | RS: Yes | Type: RX